FAERS Safety Report 20017484 (Version 1)
Quarter: 2021Q4

REPORT INFORMATION
  Report Type: Spontaneous
  Country: CA (occurrence: CA)
  Receive Date: 20211030
  Receipt Date: 20211030
  Transmission Date: 20220303
  Serious: Yes (Life-Threatening)
  Sender: FDA-Public Use
  Company Number: CA-TEVA-2021-CA-1969744

PATIENT
  Age: 9 Year
  Sex: Male
  Weight: 34 kg

DRUGS (16)
  1. ETOPOSIDE [Suspect]
     Active Substance: ETOPOSIDE
     Indication: Lymphoma
     Route: 042
  2. CYTARABINE [Suspect]
     Active Substance: CYTARABINE
     Indication: Lymphoma
     Route: 042
  3. CYTARABINE [Suspect]
     Active Substance: CYTARABINE
     Route: 042
  4. ACETAMINOPHEN [Concomitant]
     Active Substance: ACETAMINOPHEN
  5. ALLOPURINOL [Concomitant]
     Active Substance: ALLOPURINOL
  6. ALTEPLASE [Concomitant]
     Active Substance: ALTEPLASE
  7. DEXAMETHASONE [Concomitant]
     Active Substance: DEXAMETHASONE
  8. DIMENHYDRINATE [Concomitant]
     Active Substance: DIMENHYDRINATE
  9. DIPHENHYDRAMINE [Concomitant]
     Active Substance: DIPHENHYDRAMINE
  10. FLUCONAZOLE [Concomitant]
     Active Substance: FLUCONAZOLE
  11. HYDROCORTISONE [Concomitant]
     Active Substance: HYDROCORTISONE
  12. ONDANSETRON [Concomitant]
     Active Substance: ONDANSETRON
  13. PIPERACILLIN SODIUM\TAZOBACTAM SODIUM [Concomitant]
     Active Substance: PIPERACILLIN SODIUM\TAZOBACTAM SODIUM
  14. POLYETHYLENE GLYCOL [Concomitant]
     Active Substance: POLYETHYLENE GLYCOL
  15. POTASSIUM [Concomitant]
     Active Substance: POTASSIUM
  16. VANCOMYCIN [Concomitant]
     Active Substance: VANCOMYCIN

REACTIONS (3)
  - Gram stain positive [Recovered/Resolved]
  - Aplastic anaemia [Recovered/Resolved]
  - Pyrexia [Recovered/Resolved]
